FAERS Safety Report 4312834-2 (Version None)
Quarter: 2004Q1

REPORT INFORMATION
  Report Type: 
  Country: None (occurrence: None)
  Receive Date: 20040304
  Receipt Date: 20040224
  Transmission Date: 20041129
  Serious: Yes (Other)
  Sender: FDA-Public Use
  Company Number: 2004-DE-00759GD

PATIENT
  Sex: Male

DRUGS (5)
  1. PREDNISONE [Suspect]
     Indication: ALLERGIC GRANULOMATOUS ANGIITIS
     Dosage: 10 TO 20 MG/D
  2. CORTICOSTEROIDS (CORTICOSTEROIDS) [Suspect]
     Indication: ALLERGIC GRANULOMATOUS ANGIITIS
     Dosage: IH
     Route: 025
  3. CYCLOPHOSPHAMIDE [Suspect]
     Indication: ALLERGIC GRANULOMATOUS ANGIITIS
     Dosage: 2 MG/KG, IN 1994 DOSE WAS
     Dates: start: 19920101
  4. AZATHIOPRINE [Concomitant]
  5. BRONCHODILATORS [Concomitant]

REACTIONS (15)
  - ASEPTIC NECROSIS BONE [None]
  - ASTHMA [None]
  - CATARACT [None]
  - CELLULITIS [None]
  - HAEMOPTYSIS [None]
  - INFECTION [None]
  - OSTEOPOROSIS [None]
  - PNEUMONIA [None]
  - PYELONEPHRITIS [None]
  - RASH PUSTULAR [None]
  - SINUSITIS [None]
  - SKIN STRIAE [None]
  - SPINAL FRACTURE [None]
  - WEIGHT DECREASED [None]
  - WEIGHT INCREASED [None]
